FAERS Safety Report 18343769 (Version 2)
Quarter: 2020Q4

REPORT INFORMATION
  Report Type: Spontaneous
  Country: US (occurrence: US)
  Receive Date: 20201005
  Receipt Date: 20201015
  Transmission Date: 20210114
  Serious: No
  Sender: FDA-Public Use
  Company Number: US-AKORN PHARMACEUTICALS-2020AKN01252

PATIENT
  Age: 30 Year
  Sex: Female

DRUGS (4)
  1. MYORISAN [Suspect]
     Active Substance: ISOTRETINOIN
     Dosage: 60 MG, 1X/DAY
     Dates: start: 20200227
  2. ISOTRETINOIN (AMNEAL) [Suspect]
     Active Substance: ISOTRETINOIN
     Dosage: 60 MG, 1X/DAY
     Dates: start: 20200421
  3. ISOTRETINOIN (AMNEAL) [Suspect]
     Active Substance: ISOTRETINOIN
     Dosage: 120 MG, 1X/DAY
     Dates: start: 20200421
  4. MYORISAN [Suspect]
     Active Substance: ISOTRETINOIN
     Dosage: 120 MG, 1X/DAY
     Dates: start: 20200227

REACTIONS (1)
  - No adverse event [Recovered/Resolved]

NARRATIVE: CASE EVENT DATE: 20200921
